FAERS Safety Report 19109671 (Version 1)
Quarter: 2021Q2

REPORT INFORMATION
  Report Type: Report from Study
  Country: BR (occurrence: BR)
  Receive Date: 20210408
  Receipt Date: 20210408
  Transmission Date: 20210717
  Serious: Yes (Other)
  Sender: FDA-Public Use
  Company Number: NVSC2019BR001659

PATIENT
  Sex: Male
  Weight: 82 kg

DRUGS (5)
  1. COSENTYX [Suspect]
     Active Substance: SECUKINUMAB
     Dosage: UNK, UNKNOWN
     Route: 065
     Dates: start: 20191007
  2. PAROXETIN [Concomitant]
     Active Substance: PAROXETINE HYDROCHLORIDE
     Indication: PRODUCT USED FOR UNKNOWN INDICATION
     Dosage: 1 DF, QD (FOR SEDATION)
     Route: 048
  3. COSENTYX [Suspect]
     Active Substance: SECUKINUMAB
     Indication: PSORIASIS
     Dosage: 150 MG, QMO (2 AMPULES) (BATCH NUMBER WAS NOT REPORTED)
     Route: 058
     Dates: start: 20190807
  4. COSENTYX [Suspect]
     Active Substance: SECUKINUMAB
     Dosage: 300 MG, UNKNOWN
     Route: 065
     Dates: start: 20200103, end: 20201204
  5. ACTONEL [Suspect]
     Active Substance: RISEDRONATE SODIUM
     Indication: MINERAL SUPPLEMENTATION
     Dosage: 1 DF, QMO
     Route: 048

REACTIONS (5)
  - Immune system disorder [Unknown]
  - Vitamin K decreased [Recovered/Resolved]
  - Asthenia [Unknown]
  - Pancreatic carcinoma [Recovering/Resolving]
  - Decreased immune responsiveness [Recovered/Resolved]
